FAERS Safety Report 6026606-4 (Version None)
Quarter: 2008Q4

REPORT INFORMATION
  Report Type: 
  Country: None (occurrence: None)
  Receive Date: 20081231
  Receipt Date: 20081222
  Transmission Date: 20090506
  Serious: Yes (Other)
  Sender: FDA-Public Use
  Company Number: 038768

PATIENT
  Age: 40 Year
  Sex: Female

DRUGS (1)
  1. AMIODARONE HCL [Suspect]

REACTIONS (7)
  - ADVERSE DRUG REACTION [None]
  - ATELECTASIS [None]
  - CARDIAC DISORDER [None]
  - LIVER DISORDER [None]
  - LUNG CONSOLIDATION [None]
  - PULMONARY TOXICITY [None]
  - SPLEEN DISORDER [None]
